FAERS Safety Report 15463676 (Version 1)
Quarter: 2018Q4

REPORT INFORMATION
  Report Type: Spontaneous
  Country: US (occurrence: US)
  Receive Date: 20181001
  Receipt Date: 20181001
  Transmission Date: 20190204
  Serious: Yes (Hospitalization)
  Sender: FDA-Public Use
  Company Number: None

PATIENT
  Age: 38 Year
  Sex: Female

DRUGS (1)
  1. TASIGNA [Suspect]
     Active Substance: NILOTINIB
     Dates: start: 201803

REACTIONS (4)
  - Skin ulcer [None]
  - Skin burning sensation [None]
  - Pain [None]
  - Blood glucose abnormal [None]

NARRATIVE: CASE EVENT DATE: 20180920
